FAERS Safety Report 5073755-3 (Version None)
Quarter: 2006Q3

REPORT INFORMATION
  Report Type: 
  Country: None (occurrence: None)
  Receive Date: 20060808
  Receipt Date: 20060519
  Transmission Date: 20061208
  Serious: No
  Sender: FDA-Public Use
  Company Number: US-AMGEN-KDL180324

PATIENT
  Sex: Male

DRUGS (5)
  1. PROCRIT [Suspect]
     Indication: PRE-EXISTING DISEASE
     Dates: start: 20060504
  2. ALDACTONE [Concomitant]
  3. LASIX [Concomitant]
  4. LACTULOSE [Concomitant]
  5. MSIR [Concomitant]

REACTIONS (2)
  - MUSCLE SPASMS [None]
  - MUSCULOSKELETAL STIFFNESS [None]
